FAERS Safety Report 24078682 (Version 1)
Quarter: 2024Q3

REPORT INFORMATION
  Report Type: Report from Study
  Country: US (occurrence: US)
  Receive Date: 20240711
  Receipt Date: 20240711
  Transmission Date: 20241016
  Serious: Yes (Death, Other)
  Sender: UCB
  Company Number: US-UCBSA-2024028286

PATIENT
  Age: 72 Year
  Sex: Female
  Weight: 35.828 kg

DRUGS (1)
  1. ROTIGOTINE [Suspect]
     Active Substance: ROTIGOTINE
     Indication: Parkinsonism
     Dosage: 1 MILLIGRAM, ONCE DAILY (QD) (1 PATCH DAILY)
     Route: 062
     Dates: end: 20240509

REACTIONS (6)
  - Respiratory failure [Fatal]
  - Dementia [Fatal]
  - Failure to thrive [Fatal]
  - Loss of consciousness [Unknown]
  - Fall [Unknown]
  - Head injury [Unknown]

NARRATIVE: CASE EVENT DATE: 20231001
